FAERS Safety Report 22166023 (Version 1)
Quarter: 2023Q1

REPORT INFORMATION
  Report Type: Spontaneous
  Country: US (occurrence: None)
  Receive Date: 20230331
  Receipt Date: 20230331
  Transmission Date: 20230417
  Serious: Yes (Death)
  Sender: FDA-Public Use
  Company Number: None

PATIENT
  Age: 90 Year
  Sex: Male

DRUGS (9)
  1. IMATINIB MESYLATE [Suspect]
     Active Substance: IMATINIB MESYLATE
     Indication: Leukaemia
     Dosage: FREQUENCY : 3 TIMES A DAY;?
     Route: 048
     Dates: start: 20220303
  2. ATORVASTATIN CALCIUM [Concomitant]
     Active Substance: ATORVASTATIN CALCIUM
     Dates: start: 20221128
  3. FUROSEMIDE [Concomitant]
     Active Substance: FUROSEMIDE
     Dates: start: 20220721
  4. hydroxyurea 500 mg capsules [Concomitant]
     Dates: start: 20220602
  5. levothyroxine 0.025 mg tablets [Concomitant]
     Dates: start: 20210210
  6. metoprolol er succinate 50 mg tablets [Concomitant]
     Dates: start: 20220419
  7. prochlorperazine 10 mg tablets [Concomitant]
     Dates: start: 20220725
  8. torsemide 10 mg tablets [Concomitant]
     Dates: start: 20220722
  9. TRAMADOL [Concomitant]
     Active Substance: TRAMADOL
     Dates: start: 20230301

REACTIONS (1)
  - Death [None]

NARRATIVE: CASE EVENT DATE: 20230330
